FAERS Safety Report 8969653 (Version 1)
Quarter: 2012Q4

REPORT INFORMATION
  Report Type: 
  Country: US (occurrence: US)
  Receive Date: 20121218
  Receipt Date: 20121218
  Transmission Date: 20130627
  Serious: No
  Sender: FDA-Public Use
  Company Number: US-BRISTOL-MYERS SQUIBB COMPANY-16231797

PATIENT
  Age: 61 Year
  Sex: Female
  Weight: 56.69 kg

DRUGS (7)
  1. ABILIFY [Suspect]
     Indication: ANXIETY
     Dates: start: 2011
  2. ABILIFY [Suspect]
     Indication: DEPRESSION
     Dates: start: 2011
  3. NEXIUM [Concomitant]
  4. VALIUM [Concomitant]
  5. ZOLOFT [Concomitant]
  6. LIPITOR [Concomitant]
  7. FISH OIL [Concomitant]

REACTIONS (2)
  - Rash [Recovered/Resolved]
  - Bradyphrenia [Recovered/Resolved]
